FAERS Safety Report 4960246-0 (Version None)
Quarter: 2006Q1

REPORT INFORMATION
  Report Type: 
  Country: None (occurrence: None)
  Receive Date: 20060328
  Receipt Date: 20060317
  Transmission Date: 20060701
  Serious: Yes (Other)
  Sender: FDA-Public Use
  Company Number: 2006039295

PATIENT
  Sex: Female
  Weight: 113.3993 kg

DRUGS (9)
  1. ZYRTEC [Suspect]
     Indication: HYPERSENSITIVITY
     Dosage: 10 MG (10 MG, 1 IN 1 D), ORAL
     Route: 048
  2. CELEBREX [Suspect]
     Indication: ARTHRITIS
     Dates: start: 20040101, end: 20040101
  3. VERAPAMIL HYDROCHLORIDE [Suspect]
     Indication: HYPERTENSION
  4. VIOXX [Suspect]
     Indication: ARTHRITIS
     Dosage: 2 IN 1 D
  5. GUAIFENESIN (GUAIFENESIN) [Concomitant]
  6. ALBUTEROL [Concomitant]
  7. METOPROLOL (METOPROLOL) [Concomitant]
  8. SOMA [Concomitant]
  9. DARVOCET [Concomitant]

REACTIONS (9)
  - ARTHRITIS [None]
  - BODY HEIGHT DECREASED [None]
  - CONDITION AGGRAVATED [None]
  - ECONOMIC PROBLEM [None]
  - HAEMATURIA [None]
  - HAEMOPTYSIS [None]
  - HYPERTENSION [None]
  - LOWER LIMB FRACTURE [None]
  - TREATMENT NONCOMPLIANCE [None]
